FAERS Safety Report 16031656 (Version 1)
Quarter: 2019Q1

REPORT INFORMATION
  Report Type: Report from Study
  Country: ES (occurrence: ES)
  Receive Date: 20190304
  Receipt Date: 20190304
  Transmission Date: 20190418
  Serious: Yes (Death, Hospitalization)
  Sender: FDA-Public Use
  Company Number: ES-CELGENEUS-ESP-20190209693

PATIENT
  Age: 74 Year
  Sex: Male

DRUGS (7)
  1. ADIRO [Concomitant]
     Active Substance: ASPIRIN
     Indication: PRODUCT USED FOR UNKNOWN INDICATION
     Route: 048
  2. TARGIN [Concomitant]
     Active Substance: NALOXONE HYDROCHLORIDE\OXYCODONE HYDROCHLORIDE
     Indication: PRODUCT USED FOR UNKNOWN INDICATION
     Dosage: 40/20 MG
     Route: 048
  3. ACICLOVIR [Concomitant]
     Active Substance: ACYCLOVIR
     Indication: PRODUCT USED FOR UNKNOWN INDICATION
     Route: 048
  4. DEXAMETHASONE. [Suspect]
     Active Substance: DEXAMETHASONE
     Indication: PLASMA CELL MYELOMA
     Route: 048
     Dates: start: 20170323, end: 20190131
  5. FILANESIB [Suspect]
     Active Substance: FILANESIB
     Indication: PLASMA CELL MYELOMA
     Route: 041
     Dates: start: 20170323, end: 20190201
  6. POMALIDOMIDE [Suspect]
     Active Substance: POMALIDOMIDE
     Indication: PLASMA CELL MYELOMA
     Route: 048
     Dates: start: 20170323, end: 20190201
  7. LYRICA [Concomitant]
     Active Substance: PREGABALIN
     Indication: PRODUCT USED FOR UNKNOWN INDICATION
     Route: 048

REACTIONS (2)
  - Ischaemic stroke [Fatal]
  - Pyrexia [Not Recovered/Not Resolved]

NARRATIVE: CASE EVENT DATE: 20190202
